FAERS Safety Report 6237546-X (Version None)
Quarter: 2009Q2

REPORT INFORMATION
  Report Type: 
  Country: None (occurrence: None)
  Receive Date: 20090616
  Receipt Date: 20090604
  Transmission Date: 20091009
  Serious: Yes (Hospitalization)
  Sender: FDA-Public Use
  Company Number: 2008AL011303

PATIENT
  Age: 79 Year
  Sex: Male

DRUGS (10)
  1. DIGOXIN [Suspect]
     Dosage: 0.25MG, DAILY, PO
     Route: 048
  2. METOPROLOL SUCCINATE [Concomitant]
  3. GLIPIZIDE [Concomitant]
  4. COZAAR [Concomitant]
  5. ZOCOR [Concomitant]
  6. HYDRALAZINE HCL [Concomitant]
  7. LOTREL [Concomitant]
  8. NIASPAN [Concomitant]
  9. PROTONIX [Concomitant]
  10. ASPIRIN [Concomitant]

REACTIONS (14)
  - ANHEDONIA [None]
  - ANXIETY [None]
  - APPARENT DEATH [None]
  - COLD SWEAT [None]
  - HEART RATE IRREGULAR [None]
  - MULTIPLE INJURIES [None]
  - NAUSEA [None]
  - PAIN [None]
  - PALPITATIONS [None]
  - RENAL FAILURE ACUTE [None]
  - THERAPEUTIC AGENT TOXICITY [None]
  - UNEVALUABLE EVENT [None]
  - VISUAL IMPAIRMENT [None]
  - VOMITING [None]
